FAERS Safety Report 17991187 (Version 1)
Quarter: 2020Q3

REPORT INFORMATION
  Report Type: Spontaneous
  Country: US (occurrence: US)
  Receive Date: 20200707
  Receipt Date: 20200707
  Transmission Date: 20201103
  Serious: Yes (Other)
  Sender: FDA-Public Use
  Company Number: US-ASTRAZENECA-2020SE83188

PATIENT
  Age: 589 Month
  Sex: Female

DRUGS (1)
  1. BYDUREON [Suspect]
     Active Substance: EXENATIDE
     Indication: DIABETES MELLITUS
     Route: 058

REACTIONS (19)
  - Dyspnoea exertional [Unknown]
  - Nausea [Not Recovered/Not Resolved]
  - Dizziness [Not Recovered/Not Resolved]
  - Blood potassium increased [Recovered/Resolved]
  - Diarrhoea [Recovering/Resolving]
  - Renal disorder [Unknown]
  - Crying [Unknown]
  - Photosensitivity reaction [Unknown]
  - Asthenia [Unknown]
  - Carbohydrate antigen 125 increased [Recovering/Resolving]
  - Renal impairment [Not Recovered/Not Resolved]
  - Constipation [Unknown]
  - Nasopharyngitis [Not Recovered/Not Resolved]
  - Fatigue [Recovering/Resolving]
  - Alopecia [Unknown]
  - Decreased appetite [Not Recovered/Not Resolved]
  - Vomiting [Not Recovered/Not Resolved]
  - Blood magnesium decreased [Unknown]
  - Affective disorder [Recovering/Resolving]

NARRATIVE: CASE EVENT DATE: 201912
